FAERS Safety Report 8150660-7 (Version None)
Quarter: 2012Q1

REPORT INFORMATION
  Report Type: 
  Country: None (occurrence: None)
  Receive Date: 20120220
  Receipt Date: 20120208
  Transmission Date: 20120608
  Serious: Yes (Disabling)
  Sender: FDA-Public Use
  Company Number: PHHY2012AU003856

PATIENT
  Sex: Male

DRUGS (3)
  1. FUROSEMIDE [Concomitant]
     Route: 048
  2. SPIRONOLACTONE [Concomitant]
  3. SANDOSTATIN LAR [Suspect]
     Indication: CARCINOID SYNDROME
     Dosage: 30 MG, Q4M
     Route: 030
     Dates: start: 20100730, end: 20120131

REACTIONS (2)
  - WEIGHT DECREASED [None]
  - CONFUSIONAL STATE [None]
